FAERS Safety Report 23661408 (Version 1)
Quarter: 2024Q1

REPORT INFORMATION
  Report Type: Spontaneous
  Country: US (occurrence: US)
  Receive Date: 20240322
  Receipt Date: 20240322
  Transmission Date: 20240409
  Serious: No
  Sender: FDA-Public Use
  Company Number: US-JNJFOC-20240307766

PATIENT
  Age: 39 Year

DRUGS (1)
  1. WOMENS ROGAINE [Suspect]
     Active Substance: MINOXIDIL
     Indication: Alopecia
     Dosage: DOSE + FREQUENCY: AS DIRECTED: ONE ML AND TWICE DAILY APPLIED DIRECTLY TO SCALP IN THE HAIR LOSS ARE
     Route: 061
     Dates: start: 20240211

REACTIONS (3)
  - Eczema [Recovering/Resolving]
  - Drug hypersensitivity [Recovering/Resolving]
  - Application site pain [Recovering/Resolving]

NARRATIVE: CASE EVENT DATE: 20240213
